FAERS Safety Report 13094519 (Version 2)
Quarter: 2017Q1

REPORT INFORMATION
  Report Type: Spontaneous
  Country: US (occurrence: US)
  Receive Date: 20170106
  Receipt Date: 20170207
  Transmission Date: 20170428
  Serious: Yes (Hospitalization, Other)
  Sender: FDA-Public Use
  Company Number: US-PFIZER INC-2017006657

PATIENT
  Age: 31 Year
  Sex: Female
  Weight: 59 kg

DRUGS (13)
  1. RIFAMPIN. [Interacting]
     Active Substance: RIFAMPIN
     Indication: MENINGITIS BACTERIAL
  2. FLUDARABINE [Concomitant]
     Active Substance: FLUDARABINE PHOSPHATE
     Dosage: UNK
  3. VANCOMYCIN [Concomitant]
     Active Substance: VANCOMYCIN
     Indication: STAPHYLOCOCCAL INFECTION
     Dosage: UNK
     Route: 042
  4. ATGAM [Concomitant]
     Active Substance: EQUINE THYMOCYTE IMMUNE GLOBULIN
  5. VORICONAZOLE. [Interacting]
     Active Substance: VORICONAZOLE
     Indication: ANTIFUNGAL PROPHYLAXIS
     Dosage: 200 MG, 2X/DAY
     Route: 048
  6. RIFAMPIN. [Interacting]
     Active Substance: RIFAMPIN
     Indication: STAPHYLOCOCCAL INFECTION
     Dosage: 450 MG, 2X/DAY (EVERY 12 HOURS)
     Route: 042
  7. MICAFUNGIN [Concomitant]
     Active Substance: MICAFUNGIN
     Indication: ANTIFUNGAL PROPHYLAXIS
     Dosage: 150 MG, DAILY
     Route: 042
  8. LINEZOLID. [Concomitant]
     Active Substance: LINEZOLID
     Dosage: 600 MG, 2X/DAY (EVERY 12 HOURS)
     Route: 042
  9. METHYLPREDNISOLONE. [Concomitant]
     Active Substance: METHYLPREDNISOLONE
     Dosage: UNK
  10. MYCOPHENOLATE [Concomitant]
     Active Substance: MYCOPHENOLIC ACID
     Indication: PROPHYLAXIS AGAINST GRAFT VERSUS HOST DISEASE
     Dosage: UNK
  11. CYCLOPHOSPHAMIDE. [Concomitant]
     Active Substance: CYCLOPHOSPHAMIDE
     Dosage: UNK
  12. VANCOMYCIN [Concomitant]
     Active Substance: VANCOMYCIN
     Indication: MENINGITIS BACTERIAL
  13. SIROLIMUS. [Suspect]
     Active Substance: SIROLIMUS
     Indication: PROPHYLAXIS AGAINST GRAFT VERSUS HOST DISEASE
     Dosage: 0.4 MG, DAILY
     Route: 048

REACTIONS (4)
  - Immunosuppressant drug level decreased [Recovered/Resolved]
  - Product use issue [Unknown]
  - Drug interaction [Unknown]
  - Graft versus host disease [Unknown]
